FAERS Safety Report 7049962 (Version 4)
Quarter: 2013Q2

REPORT INFORMATION
  Report Type: Spontaneous
  Country: GB (occurrence: GB)
  Receive Date: 20090714
  Receipt Date: 20130423
  Transmission Date: 20140414
  Serious: Yes (Hospitalization, Other)
  Sender: FDA-Public Use
  Company Number: GB-ABBOTT-09P-167-0584228-00

PATIENT
  Age: 72 Year
  Sex: Female

DRUGS (12)
  1. WARFARIN [Suspect]
     Indication: THROMBOSIS PROPHYLAXIS
     Dates: start: 200309, end: 200309
  2. ZOTON [Suspect]
     Indication: PROPHYLAXIS
  3. FLUOXETINE HCL [Suspect]
     Indication: PRODUCT USED FOR UNKNOWN INDICATION
  4. FLUOXETINE [Suspect]
     Indication: PRODUCT USED FOR UNKNOWN INDICATION
  5. TPN [Suspect]
     Indication: SHORT-BOWEL SYNDROME
     Dosage: 38 KCAL/KG/DAY WITH 1.4 GM/KG/DAY LIPIDS
  6. TPN [Suspect]
     Dosage: 25 KCAL/KG/DAY WITH LIPIDS 0.35 GM/KG/DAY
  7. LEVOTHYROXINE [Concomitant]
     Indication: PRODUCT USED FOR UNKNOWN INDICATION
  8. LOPERAMIDE [Concomitant]
     Indication: PRODUCT USED FOR UNKNOWN INDICATION
     Dosage: NOT REPORTED
  9. TEMAZEPAM [Concomitant]
     Indication: PRODUCT USED FOR UNKNOWN INDICATION
     Dosage: NOT REPORTED
  10. CODEINE [Concomitant]
     Indication: PRODUCT USED FOR UNKNOWN INDICATION
  11. URSODEOXYCHOLIC ACID [Concomitant]
     Indication: PRURITUS
  12. STRUCTOLIPID [Concomitant]
     Indication: NUTRITIONAL SUPPLEMENTATION

REACTIONS (10)
  - Hepatotoxicity [Unknown]
  - Hypothyroidism [Unknown]
  - Condition aggravated [Unknown]
  - Feeding disorder [Unknown]
  - Mesenteric artery thrombosis [Unknown]
  - General physical health deterioration [Unknown]
  - Device related sepsis [Unknown]
  - Hyporeflexia [Unknown]
  - Intestinal ischaemia [Unknown]
  - Hepatitis cholestatic [Unknown]
